FAERS Safety Report 14199618 (Version 1)
Quarter: 2017Q4

REPORT INFORMATION
  Report Type: Spontaneous
  Country: GR (occurrence: GR)
  Receive Date: 20171117
  Receipt Date: 20171117
  Transmission Date: 20180321
  Serious: Yes (Disabling)
  Sender: FDA-Public Use
  Company Number: GR-BAYER-2017-213964

PATIENT
  Sex: Male

DRUGS (1)
  1. CIPROXIN [Suspect]
     Active Substance: CIPROFLOXACIN
     Indication: SOFT TISSUE INFECTION
     Dosage: UNK

REACTIONS (2)
  - Skin infection [Unknown]
  - Soft tissue infection [Unknown]
